FAERS Safety Report 5282226-0 (Version None)
Quarter: 2007Q1

REPORT INFORMATION
  Report Type: 
  Country: None (occurrence: None)
  Receive Date: 20070330
  Receipt Date: 20070320
  Transmission Date: 20070707
  Serious: Yes (Other)
  Sender: FDA-Public Use
  Company Number: US-PFIZER INC-2007022107

PATIENT
  Sex: Male
  Weight: 122.9 kg

DRUGS (11)
  1. CHANTIX [Suspect]
     Dosage: FREQ:DAILY
     Dates: start: 20070301, end: 20070301
  2. DRUG, UNSPECIFIED [Interacting]
  3. REYATAZ [Concomitant]
  4. RITONAVIR [Concomitant]
  5. ZIAGEN [Concomitant]
  6. ZERIT [Concomitant]
  7. BACTRIM DS [Concomitant]
  8. HYDROCHLOROTHIAZIDE [Concomitant]
  9. ALBUTEROL [Concomitant]
  10. ZOLOFT [Concomitant]
  11. ADVAIR DISKUS 100/50 [Concomitant]

REACTIONS (6)
  - DEHYDRATION [None]
  - DIARRHOEA [None]
  - DRUG INTERACTION [None]
  - NIGHT BLINDNESS [None]
  - VIRAL INFECTION [None]
  - VISION BLURRED [None]
